FAERS Safety Report 10217506 (Version 1)
Quarter: 2014Q2

REPORT INFORMATION
  Report Type: Spontaneous
  Country: US (occurrence: US)
  Receive Date: 20140604
  Receipt Date: 20140604
  Transmission Date: 20141212
  Serious: Yes (Hospitalization)
  Sender: FDA-Public Use
  Company Number: US-UCBSA-122753

PATIENT
  Sex: Female

DRUGS (1)
  1. KEPPRA XR [Suspect]
     Indication: CONVULSION
     Dosage: 500 MG 2 DAILY

REACTIONS (1)
  - Pleural effusion [Not Recovered/Not Resolved]
